FAERS Safety Report 8968003 (Version 2)
Quarter: 2013Q1

REPORT INFORMATION
  Report Type: Spontaneous
  Country: GB (occurrence: None)
  Receive Date: 20121210
  Receipt Date: 20130327
  Transmission Date: 20140127
  Serious: Yes (Hospitalization)
  Sender: FDA-Public Use
  Company Number: AUR-APL-2012-05184

PATIENT
  Age: 50 Year
  Sex: Male

DRUGS (6)
  1. CIPROFLOXACIN (CIPROFLOXACIN) [Suspect]
     Indication: ABDOMINAL PAIN
     Dosage: 1000 MG (500 MG,2 IN 1 D),ORAL
     Route: 048
     Dates: start: 20121103, end: 20121110
  2. CIPROFLOXACIN (CIPROFLOXACIN) [Suspect]
     Indication: URINARY TRACT INFECTION
     Dosage: 1000 MG (500 MG,2 IN 1 D),ORAL
     Route: 048
     Dates: start: 20121103, end: 20121110
  3. BETAHISTINE [Concomitant]
  4. GLANDOSANE [Concomitant]
  5. HYLPERMELLOSE (HYPERMELLOSE) [Concomitant]
  6. SERETIDE (SERETIDE /01420901/) [Concomitant]

REACTIONS (3)
  - Abdominal pain [None]
  - Condition aggravated [None]
  - Syncope [None]
